FAERS Safety Report 7691656-9 (Version None)
Quarter: 2011Q3

REPORT INFORMATION
  Report Type: 
  Country: None (occurrence: None)
  Receive Date: 20110818
  Receipt Date: 20110810
  Transmission Date: 20111222
  Serious: Yes (Hospitalization)
  Sender: FDA-Public Use
  Company Number: US-KINGPHARMUSA00001-K201100943

PATIENT
  Sex: Female
  Weight: 77.098 kg

DRUGS (1)
  1. BICILLIN L-A [Suspect]
     Indication: LYME DISEASE
     Dosage: 1200000 IU, QD
     Route: 030
     Dates: start: 20100401

REACTIONS (5)
  - ABDOMINAL HERNIA [None]
  - HISTOLOGY ABNORMAL [None]
  - CARDIAC DISORDER [None]
  - URINARY TRACT INFECTION [None]
  - ATRIAL FIBRILLATION [None]
